FAERS Safety Report 8127809-5 (Version None)
Quarter: 2011Q4

REPORT INFORMATION
  Report Type: 
  Country: None (occurrence: None)
  Receive Date: 20111227
  Receipt Date: 20110915
  Transmission Date: 20120403
  Serious: No
  Sender: FDA-Public Use
  Company Number: PHEH2011US03565

PATIENT
  Age: 50 Year
  Sex: Female
  Weight: 54.4 kg

DRUGS (13)
  1. MULTIPLE VITAMINS (ASCORBIC ACID, ERGOCALCIFEROL, FOLIC ACID, RETINOL, [Concomitant]
  2. MAGNESIUM (MAGNESIUM) [Concomitant]
  3. NITROFURANTOIN [Concomitant]
  4. FLAXSEED OIL (LINUM USITATISSIMUM SEED OIL) [Concomitant]
  5. OMEGA  (FISH OIL) CAPSULE [Concomitant]
  6. COQ10 (UBIDECARENONE) [Concomitant]
  7. VITAMIN E [Concomitant]
  8. ACIDOPHILUS (LACTOBACILLUS ACIDOPHILUS) [Concomitant]
  9. CYMBALTA [Concomitant]
  10. VITAMIN D3 (COLECALCIFEROL) [Concomitant]
  11. CALCIUM CARBONATE [Concomitant]
  12. GABAPENTIN [Concomitant]
  13. GILENYA [Suspect]
     Indication: MULTIPLE SCLEROSIS
     Dosage: 0.5 MG, QD, ORAL
     Route: 048
     Dates: start: 20110527

REACTIONS (2)
  - PAIN IN EXTREMITY [None]
  - BURNING SENSATION [None]
